FAERS Safety Report 7850162-9 (Version None)
Quarter: 2011Q4

REPORT INFORMATION
  Report Type: 
  Country: None (occurrence: None)
  Receive Date: 20111026
  Receipt Date: 20111014
  Transmission Date: 20120403
  Serious: Yes (Hospitalization)
  Sender: FDA-Public Use
  Company Number: US-BAYER-2011-027744

PATIENT
  Age: 23 Year
  Sex: Female

DRUGS (2)
  1. YAZ [Suspect]
     Dosage: UNK, QD
     Route: 048
     Dates: start: 20070401, end: 20080101
  2. YAZ [Suspect]
     Dosage: UNK
     Dates: start: 20070501, end: 20080101

REACTIONS (7)
  - INJURY [None]
  - EMOTIONAL DISTRESS [None]
  - CHOLECYSTECTOMY [None]
  - PAIN [None]
  - ANXIETY [None]
  - GENERAL PHYSICAL HEALTH DETERIORATION [None]
  - ANHEDONIA [None]
